FAERS Safety Report 7451718-8 (Version None)
Quarter: 2011Q2

REPORT INFORMATION
  Report Type: 
  Country: None (occurrence: None)
  Receive Date: 20110502
  Receipt Date: 20100722
  Transmission Date: 20111010
  Serious: No
  Sender: FDA-Public Use
  Company Number: US-ASTRAZENECA-2010SE34350

PATIENT

DRUGS (4)
  1. AZATHIOPINE [Concomitant]
  2. TORPAMAX [Concomitant]
  3. NEXIUM [Suspect]
     Route: 048
  4. GABAPENTIN [Concomitant]

REACTIONS (3)
  - DYSPEPSIA [None]
  - DRUG DOSE OMISSION [None]
  - ABDOMINAL PAIN UPPER [None]
